APPROVED DRUG PRODUCT: BILTRICIDE
Active Ingredient: PRAZIQUANTEL
Strength: 600MG
Dosage Form/Route: TABLET;ORAL
Application: N018714 | Product #001
Applicant: BAYER HEALTHCARE PHARMACEUTICALS INC
Approved: Dec 29, 1982 | RLD: Yes | RS: No | Type: DISCN